FAERS Safety Report 17793598 (Version 1)
Quarter: 2020Q2

REPORT INFORMATION
  Report Type: Spontaneous
  Country: US (occurrence: US)
  Receive Date: 20200515
  Receipt Date: 20200515
  Transmission Date: 20200714
  Serious: No
  Sender: FDA-Public Use
  Company Number: US-BIODELIVERY SCIENCES INTERNATIONAL-2020BDSI0310

PATIENT
  Sex: Female

DRUGS (1)
  1. BUPRENORPHINE. [Suspect]
     Active Substance: BUPRENORPHINE
     Indication: PAIN
     Route: 002
     Dates: start: 20200429

REACTIONS (3)
  - Incorrect route of product administration [Recovered/Resolved]
  - Oral administration complication [Recovered/Resolved]
  - Product adhesion issue [Recovered/Resolved]

NARRATIVE: CASE EVENT DATE: 20200429
